FAERS Safety Report 9566620 (Version 1)
Quarter: 2013Q3

REPORT INFORMATION
  Report Type: Spontaneous
  Country: US (occurrence: US)
  Receive Date: 20130930
  Receipt Date: 20130930
  Transmission Date: 20140515
  Serious: No
  Sender: FDA-Public Use
  Company Number: US-AMGEN-USASP2012062982

PATIENT
  Sex: Female
  Weight: 58.05 kg

DRUGS (12)
  1. ENBREL [Suspect]
     Indication: RHEUMATOID ARTHRITIS
     Dosage: 25 MG, 2 TIMES/WK
     Route: 058
  2. OMEPRAZOLE [Concomitant]
     Dosage: 20 MG, UNK
  3. CELEBREX [Concomitant]
     Dosage: 200 MG, UNK
  4. TYLENOL                            /00020001/ [Concomitant]
     Dosage: 650 MG, 8 HR UNK
  5. ASA [Concomitant]
     Dosage: 81 MG, LOW DOSE EC
  6. LEVOXYL [Concomitant]
     Dosage: 125 MUG, UNK
  7. LIPITOR [Concomitant]
     Dosage: 10 MG, UNK
  8. CLARITIN                           /00413701/ [Concomitant]
     Dosage: 5 MG, UNK CHW
  9. BENADRYL                           /00000402/ [Concomitant]
     Dosage: 25 MG, UNK ALG
  10. ATORVASTATIN [Concomitant]
     Dosage: 10 MG, UNK
  11. CITRACAL PLUS [Concomitant]
     Dosage: UNK
  12. CO Q10 [Concomitant]
     Dosage: 30 MG, UNK

REACTIONS (1)
  - White blood cell disorder [Unknown]
